FAERS Safety Report 15858075 (Version 1)
Quarter: 2019Q1

REPORT INFORMATION
  Report Type: Report from Study
  Country: US (occurrence: US)
  Receive Date: 20190123
  Receipt Date: 20190123
  Transmission Date: 20190417
  Serious: Yes (Hospitalization, Other)
  Sender: FDA-Public Use
  Company Number: US-BAYER-2019-015714

PATIENT
  Age: 23 Year
  Sex: Female

DRUGS (2)
  1. ASA 81MG [Suspect]
     Active Substance: ASPIRIN
     Indication: ANTIPLATELET THERAPY
     Dosage: 81 MG
  2. ENOXAPARIN [Suspect]
     Active Substance: ENOXAPARIN

REACTIONS (3)
  - Cerebral haemorrhage [None]
  - Extradural haematoma [None]
  - Hydrocephalus [None]
